FAERS Safety Report 7293899-5 (Version None)
Quarter: 2011Q1

REPORT INFORMATION
  Report Type: 
  Country: None (occurrence: None)
  Receive Date: 20110215
  Receipt Date: 20110209
  Transmission Date: 20110831
  Serious: Yes (Hospitalization, Other)
  Sender: FDA-Public Use
  Company Number: US-ABBOTT-11P-163-0704134-00

PATIENT
  Sex: Male

DRUGS (4)
  1. LIPITOR [Concomitant]
     Indication: PRODUCT USED FOR UNKNOWN INDICATION
  2. LISINOPRIL [Concomitant]
     Indication: PRODUCT USED FOR UNKNOWN INDICATION
  3. HUMIRA [Suspect]
     Route: 058
     Dates: start: 20101201
  4. HUMIRA [Suspect]
     Indication: PSORIASIS
     Route: 058
     Dates: start: 20050701, end: 20100901

REACTIONS (7)
  - PYREXIA [None]
  - HERNIA [None]
  - ATRIAL FIBRILLATION [None]
  - COUGH [None]
  - PNEUMONIA [None]
  - LUNG INFILTRATION [None]
  - HEADACHE [None]
